FAERS Safety Report 9491367 (Version 2)
Quarter: 2013Q3

REPORT INFORMATION
  Report Type: Report from Study
  Country: TH (occurrence: TH)
  Receive Date: 20130830
  Receipt Date: 20130830
  Transmission Date: 20140515
  Serious: Yes (Other)
  Sender: FDA-Public Use
  Company Number: PHHO2010TH09137

PATIENT
  Age: 66 Year
  Sex: Male
  Weight: 76.5 kg

DRUGS (5)
  1. ALISKIREN [Suspect]
     Indication: CARDIOVASCULAR DISORDER
     Route: 048
     Dates: start: 20091014, end: 20100509
  2. WARFARIN [Concomitant]
     Indication: ATRIAL FIBRILLATION
  3. DIOVAN [Concomitant]
     Indication: HYPERTENSION
  4. EZETROL [Concomitant]
  5. CARDURA [Concomitant]

REACTIONS (6)
  - Renal failure acute [Recovered/Resolved]
  - Dehydration [Recovered/Resolved]
  - Diarrhoea [Recovered/Resolved]
  - Decreased appetite [Recovered/Resolved]
  - Electrolyte imbalance [Recovered/Resolved]
  - Weight decreased [Recovered/Resolved]
